FAERS Safety Report 6551046-9 (Version None)
Quarter: 2010Q1

REPORT INFORMATION
  Report Type: 
  Country: None (occurrence: None)
  Receive Date: 20100122
  Receipt Date: 20100122
  Transmission Date: 20100710
  Serious: Yes (Hospitalization)
  Sender: FDA-Public Use
  Company Number: None

PATIENT
  Sex: Male
  Weight: 126.1 kg

DRUGS (2)
  1. PLAVIX [Suspect]
     Indication: CORONARY ARTERY DISEASE
     Dosage: 75MG ONCE DAILY PO
     Route: 048
  2. ASPIRIN [Suspect]
     Indication: CORONARY ARTERY DISEASE
     Dosage: 81 MG ONCE DAILY PO
     Route: 048

REACTIONS (1)
  - CORONARY ARTERY BYPASS [None]
